FAERS Safety Report 13012927 (Version 1)
Quarter: 2016Q4

REPORT INFORMATION
  Report Type: Spontaneous
  Country: US (occurrence: US)
  Receive Date: 20161209
  Receipt Date: 20161209
  Transmission Date: 20170207
  Serious: Yes (Death)
  Sender: FDA-Public Use
  Company Number: US-ASCEND THERAPEUTICS-1060608

PATIENT
  Sex: Female

DRUGS (13)
  1. PANTOPRAZOLE SODIUM. [Concomitant]
     Active Substance: PANTOPRAZOLE SODIUM
     Dates: end: 20161112
  2. ESTROGEL [Suspect]
     Active Substance: ESTRADIOL
  3. PEMBROLIZUMAB. [Concomitant]
     Active Substance: PEMBROLIZUMAB
     Route: 041
     Dates: end: 20161112
  4. METOCLOPRAMIDE HYDROCHLORIDE. [Concomitant]
     Active Substance: METOCLOPRAMIDE HYDROCHLORIDE
     Dates: end: 20161112
  5. OXYCODONE HYDROCHLORIDE. [Concomitant]
     Active Substance: OXYCODONE HYDROCHLORIDE
     Dates: end: 20161112
  6. BUSPIRONE [Concomitant]
     Active Substance: BUSPIRONE HYDROCHLORIDE
     Dates: end: 20161112
  7. ONDANSETRON [Concomitant]
     Active Substance: ONDANSETRON
     Dates: end: 20161112
  8. MORPHINE SULFATE. [Concomitant]
     Active Substance: MORPHINE SULFATE
     Dates: end: 20161112
  9. ESCITALOPRAM OXALATE. [Concomitant]
     Active Substance: ESCITALOPRAM OXALATE
     Dates: end: 20161112
  10. CARBOPLATIN. [Concomitant]
     Active Substance: CARBOPLATIN
     Dates: end: 20161112
  11. HYOSCYAMINE SULFATE. [Concomitant]
     Active Substance: HYOSCYAMINE SULFATE
     Dates: end: 20161112
  12. GEMCITABINE [Concomitant]
     Active Substance: GEMCITABINE\GEMCITABINE HYDROCHLORIDE
     Dates: end: 20161112
  13. POLYETHYLENE GLYCOL (3350) [Concomitant]
     Dates: end: 20161112

REACTIONS (2)
  - Cardiopulmonary failure [Fatal]
  - Cervix carcinoma [Fatal]
